FAERS Safety Report 10401638 (Version 1)
Quarter: 2014Q3

REPORT INFORMATION
  Report Type: Spontaneous
  Country: US (occurrence: US)
  Receive Date: 20140822
  Receipt Date: 20140822
  Transmission Date: 20150326
  Serious: Yes (Other)
  Sender: FDA-Public Use
  Company Number: US-009507513-1408USA008016

PATIENT
  Sex: Male

DRUGS (4)
  1. XARELTO [Suspect]
     Active Substance: RIVAROXABAN
     Indication: CEREBROVASCULAR ACCIDENT PROPHYLAXIS
     Dosage: 15 MG A DAY
     Route: 048
     Dates: start: 201306, end: 201308
  2. LOSARTAN POTASSIUM TABLETS [Concomitant]
     Active Substance: LOSARTAN POTASSIUM
     Indication: HYPERTENSION
     Dosage: 25 MG, 2 IN 1 DAY
     Route: 048
     Dates: start: 2013
  3. ZOCOR [Suspect]
     Active Substance: SIMVASTATIN
     Indication: BLOOD CHOLESTEROL INCREASED
     Dosage: 40 MG PER DAY
     Route: 048
     Dates: end: 2013
  4. XARELTO [Suspect]
     Active Substance: RIVAROXABAN
     Dosage: 20 MG, IN 1 DAY
     Route: 048
     Dates: start: 201308

REACTIONS (3)
  - Post procedural haemorrhage [Recovered/Resolved]
  - Large intestine polyp [Recovered/Resolved]
  - Alopecia [Recovered/Resolved]

NARRATIVE: CASE EVENT DATE: 2013
